FAERS Safety Report 8922097 (Version 2)
Quarter: 2013Q1

REPORT INFORMATION
  Report Type: Spontaneous
  Country: US (occurrence: US)
  Receive Date: 20121126
  Receipt Date: 20130313
  Transmission Date: 20140127
  Serious: No
  Sender: FDA-Public Use
  Company Number: US-009507513-1211USA008187

PATIENT
  Sex: Male

DRUGS (6)
  1. ASMANEX TWISTHALER [Suspect]
     Indication: CHRONIC OBSTRUCTIVE PULMONARY DISEASE
     Dosage: 220 MICROGRAM, 2 PUFFS ONCE A DAY, ROUTE: ORAL INHALATION
     Route: 048
     Dates: start: 201111
  2. ASMANEX TWISTHALER [Suspect]
     Indication: EMPHYSEMA
  3. ALLOPURINOL [Concomitant]
  4. POTASSIUM CHLORIDE [Concomitant]
  5. PRAVASTATIN SODIUM [Concomitant]
  6. RISPERIDONE [Concomitant]

REACTIONS (4)
  - Mood altered [Recovered/Resolved]
  - Dyspnoea [Recovered/Resolved]
  - Product quality issue [Unknown]
  - Drug dose omission [Unknown]
